FAERS Safety Report 9772896 (Version 3)
Quarter: 2014Q1

REPORT INFORMATION
  Report Type: Spontaneous
  Country: CH (occurrence: CH)
  Receive Date: 20131219
  Receipt Date: 20140116
  Transmission Date: 20141002
  Serious: Yes (Hospitalization)
  Sender: FDA-Public Use
  Company Number: CH-ELI_LILLY_AND_COMPANY-CH201312004590

PATIENT
  Age: 65 Year
  Sex: Male
  Weight: 76 kg

DRUGS (6)
  1. EFIENT [Suspect]
     Indication: ACUTE CORONARY SYNDROME
     Dosage: 60 MG, SINGLE
     Dates: start: 20111210, end: 20111210
  2. EFIENT [Suspect]
     Dosage: 10 MG, QD
     Dates: start: 20111211, end: 20121209
  3. CARDIO ASPIRIN [Concomitant]
     Dosage: 10 MG, QD
     Route: 048
  4. CARDIO ASPIRIN [Concomitant]
     Dosage: 100 MG, QD
  5. SIMVASTATIN [Concomitant]
     Dosage: 40 MG, QD
     Route: 048
  6. TRIATEC [Concomitant]
     Dosage: 10 MG, QD
     Route: 048

REACTIONS (5)
  - Post procedural haemorrhage [Recovered/Resolved]
  - Orthostatic hypotension [Recovered/Resolved]
  - Syncope [Recovered/Resolved]
  - Circulatory collapse [Recovered/Resolved]
  - Orthostatic intolerance [Recovered/Resolved]
